FAERS Safety Report 7301971-6 (Version None)
Quarter: 2011Q1

REPORT INFORMATION
  Report Type: 
  Country: None (occurrence: None)
  Receive Date: 20110218
  Receipt Date: 20110216
  Transmission Date: 20110831
  Serious: Yes (Hospitalization)
  Sender: FDA-Public Use
  Company Number: IT-ROCHE-759989

PATIENT
  Sex: Male

DRUGS (2)
  1. XELODA [Concomitant]
     Route: 048
     Dates: start: 20101101, end: 20110101
  2. AVASTIN [Suspect]
     Indication: RECTAL CANCER
     Dosage: FREQUENCY: CYCLE.
     Route: 042
     Dates: start: 20101101, end: 20110101

REACTIONS (2)
  - ABNORMAL BEHAVIOUR [None]
  - CEREBRAL ISCHAEMIA [None]
